FAERS Safety Report 6667027-0 (Version None)
Quarter: 2010Q2

REPORT INFORMATION
  Report Type: 
  Country: None (occurrence: None)
  Receive Date: 20100401
  Receipt Date: 20100323
  Transmission Date: 20101027
  Serious: Yes (Other)
  Sender: FDA-Public Use
  Company Number: 20108514

PATIENT
  Age: 29 Year
  Sex: Male

DRUGS (1)
  1. LIORESAL [Suspect]
     Indication: MUSCLE SPASTICITY
     Dosage: DAILY, INTERATHECAL
     Route: 039

REACTIONS (2)
  - IMPAIRED HEALING [None]
  - IMPLANT SITE EROSION [None]
